FAERS Safety Report 10597048 (Version 1)
Quarter: 2014Q4

REPORT INFORMATION
  Report Type: Spontaneous
  Country: GB (occurrence: GB)
  Receive Date: 20141121
  Receipt Date: 20141121
  Transmission Date: 20150529
  Serious: Yes (Hospitalization)
  Sender: FDA-Public Use
  Company Number: GB-CIPLA LTD.-2014GB02022

PATIENT

DRUGS (2)
  1. AMLODIPINE [Suspect]
     Active Substance: AMLODIPINE BESYLATE
     Dosage: 770 MG
     Route: 048
  2. LOSARTAN [Suspect]
     Active Substance: LOSARTAN
     Dosage: 16,640 MG, SINGLE
     Route: 048

REACTIONS (6)
  - Metabolic acidosis [Recovered/Resolved]
  - Anuria [Recovered/Resolved]
  - Overdose [Recovered/Resolved]
  - Hypotension [Recovered/Resolved]
  - Hyperkalaemia [Recovered/Resolved]
  - Pulmonary oedema [Recovered/Resolved]
